FAERS Safety Report 17400403 (Version 5)
Quarter: 2025Q3

REPORT INFORMATION
  Report Type: Spontaneous
  Country: EU (occurrence: EU)
  Receive Date: 20200211
  Receipt Date: 20250704
  Transmission Date: 20251020
  Serious: Yes (Death, Life-Threatening, Hospitalization, Disabling, Other)
  Sender: AUROBINDO
  Company Number: EU-BASI-2020000141

PATIENT
  Age: 52 Year
  Sex: Male

DRUGS (10)
  1. CELECOXIB [Suspect]
     Active Substance: CELECOXIB
     Indication: Musculoskeletal chest pain
     Route: 048
  2. OMEPRAZOLE [Suspect]
     Active Substance: OMEPRAZOLE
     Indication: Prophylaxis against gastrointestinal ulcer
     Route: 048
  3. NELVUTAMIG [Suspect]
     Active Substance: NELVUTAMIG
     Indication: Metastatic malignant melanoma
     Route: 065
  4. NIVOLUMAB [Suspect]
     Active Substance: NIVOLUMAB
     Indication: Malignant melanoma
     Route: 042
  5. NIVOLUMAB [Suspect]
     Active Substance: NIVOLUMAB
     Indication: Metastases to bone
  6. NIVOLUMAB [Suspect]
     Active Substance: NIVOLUMAB
     Indication: Metastases to liver
  7. OMEPRAZOLE [Suspect]
     Active Substance: OMEPRAZOLE
     Indication: Prophylaxis against gastrointestinal ulcer
     Route: 065
  8. LISINOPRIL [Concomitant]
     Active Substance: LISINOPRIL
     Indication: Hypertension
     Route: 048
  9. PREDNISOLONE [Concomitant]
     Active Substance: PREDNISOLONE
     Indication: Product used for unknown indication
     Dosage: 60 MILLIGRAM, ONCE A DAY
     Route: 048
  10. PREDNISOLONE [Concomitant]
     Active Substance: PREDNISOLONE
     Dosage: 40 MILLIGRAM, ONCE A DAY
     Route: 048

REACTIONS (11)
  - Acute kidney injury [Fatal]
  - Nephrotic syndrome [Fatal]
  - Tubulointerstitial nephritis [Not Recovered/Not Resolved]
  - Renal tubular necrosis [Not Recovered/Not Resolved]
  - Amyloidosis [Not Recovered/Not Resolved]
  - Normochromic normocytic anaemia [Unknown]
  - Hypercholesterolaemia [Unknown]
  - Hypoalbuminaemia [Unknown]
  - Sterile pyuria [Unknown]
  - Oedema peripheral [Unknown]
  - Proteinuria [Not Recovered/Not Resolved]
